FAERS Safety Report 17969499 (Version 1)
Quarter: 2020Q3

REPORT INFORMATION
  Report Type: Spontaneous
  Country: NL (occurrence: NL)
  Receive Date: 20200701
  Receipt Date: 20200701
  Transmission Date: 20201103
  Serious: Yes (Other)
  Sender: FDA-Public Use
  Company Number: NL-MYLANLABS-2020M1059269

PATIENT
  Sex: Female
  Weight: 85 kg

DRUGS (4)
  1. AMILORIDE HCL W/ HYDROCHLOROTHIAZIDE [Concomitant]
     Active Substance: AMILORIDE HYDROCHLORIDE\HYDROCHLOROTHIAZIDE
     Dosage: 1 DOSAGE FORM
  2. PREDNISON [Concomitant]
     Active Substance: PREDNISONE
     Dosage: TABLET, 5 MG (MILLIGRAM)
  3. NITROFURANTOIN. [Suspect]
     Active Substance: NITROFURANTOIN
     Indication: PROPHYLAXIS URINARY TRACT INFECTION
     Dosage: 100 MILLIGRAM
     Dates: start: 20180801
  4. IMURAN [Concomitant]
     Active Substance: AZATHIOPRINE
     Dosage: TABLET, 50 MG (MILLIGRAM)

REACTIONS (2)
  - Abortion spontaneous [Recovered/Resolved]
  - Maternal exposure during pregnancy [Recovered/Resolved]
